FAERS Safety Report 4577969-8 (Version None)
Quarter: 2005Q1

REPORT INFORMATION
  Report Type: 
  Country: None (occurrence: None)
  Receive Date: 20050209
  Receipt Date: 20050126
  Transmission Date: 20050727
  Serious: Yes (Other)
  Sender: FDA-Public Use
  Company Number: GB-2004-035619

PATIENT
  Age: 31 Year
  Sex: Female

DRUGS (1)
  1. YASMIN [Suspect]
     Indication: ORAL CONTRACEPTION
     Dosage: 1 TAB(S) 1X/DAY ORAL
     Route: 048
     Dates: start: 20040601, end: 20040601

REACTIONS (8)
  - ANORGASMIA [None]
  - DEPRESSION [None]
  - INCREASED APPETITE [None]
  - LOSS OF LIBIDO [None]
  - MEMORY IMPAIRMENT [None]
  - MOOD SWINGS [None]
  - NEUROSIS [None]
  - PERSONALITY CHANGE [None]
